FAERS Safety Report 13814434 (Version 1)
Quarter: 2017Q3

REPORT INFORMATION
  Report Type: Spontaneous
  Country: US (occurrence: US)
  Receive Date: 20170728
  Receipt Date: 20170728
  Transmission Date: 20171127
  Serious: Yes (Other)
  Sender: FDA-Public Use
  Company Number: None

PATIENT
  Age: 28 Year
  Sex: Female
  Weight: 103.5 kg

DRUGS (8)
  1. LEXAPRO [Concomitant]
     Active Substance: ESCITALOPRAM OXALATE
  2. GUANFACINE. [Concomitant]
     Active Substance: GUANFACINE
  3. XANAX [Concomitant]
     Active Substance: ALPRAZOLAM
  4. DIAMOX SEQUELS [Concomitant]
     Active Substance: ACETAZOLAMIDE
  5. MIRENA [Suspect]
     Active Substance: LEVONORGESTREL
     Indication: CONTRACEPTION
     Dosage: ?          QUANTITY:1 INTRAUTERINEDEVICE;?
     Route: 067
     Dates: start: 20140209
  6. METFORMIN [Concomitant]
     Active Substance: METFORMIN HYDROCHLORIDE
  7. FLONASE [Concomitant]
     Active Substance: FLUTICASONE PROPIONATE
  8. AMBIEN CR [Concomitant]
     Active Substance: ZOLPIDEM TARTRATE

REACTIONS (1)
  - Idiopathic intracranial hypertension [None]

NARRATIVE: CASE EVENT DATE: 20170727
